FAERS Safety Report 6693976-3 (Version None)
Quarter: 2010Q2

REPORT INFORMATION
  Report Type: 
  Country: None (occurrence: None)
  Receive Date: 20100423
  Receipt Date: 20100413
  Transmission Date: 20101027
  Serious: Yes (Other)
  Sender: FDA-Public Use
  Company Number: US-PFIZER INC-2010021085

PATIENT
  Sex: Female
  Weight: 60.8 kg

DRUGS (2)
  1. OGEN [Suspect]
     Indication: HORMONE REPLACEMENT THERAPY
     Dosage: 1.25 MG, 1X/DAY
     Route: 048
  2. VITAMIN D [Concomitant]
     Dosage: 50000 MG, WEEKLY

REACTIONS (1)
  - HYPOTHYROIDISM [None]
